FAERS Safety Report 6567048-2 (Version None)
Quarter: 2010Q1

REPORT INFORMATION
  Report Type: 
  Country: None (occurrence: None)
  Receive Date: 20100127
  Receipt Date: 20100111
  Transmission Date: 20100710
  Serious: Yes (Other)
  Sender: FDA-Public Use
  Company Number: B0626630A

PATIENT
  Age: 31 Year
  Sex: Male

DRUGS (5)
  1. LAMIVUDINE [Suspect]
     Indication: IMMUNOSUPPRESSION
     Dosage: 100 MG/PER DAY
  2. METHYLPREDNISOLONE [Concomitant]
  3. CYCLOSPORINE [Concomitant]
  4. MYCOPHENOLATE MOFETIL [Concomitant]
  5. PREDNISONE [Concomitant]

REACTIONS (6)
  - BODY TEMPERATURE INCREASED [None]
  - DISEASE RECURRENCE [None]
  - HEPATITIS B [None]
  - HYPERGLYCAEMIA [None]
  - KIDNEY TRANSPLANT REJECTION [None]
  - LIVER TRANSPLANT REJECTION [None]
